FAERS Safety Report 4551572-8 (Version None)
Quarter: 2005Q1

REPORT INFORMATION
  Report Type: 
  Country: None (occurrence: None)
  Receive Date: 20050111
  Receipt Date: 20050103
  Transmission Date: 20050727
  Serious: No
  Sender: FDA-Public Use
  Company Number: 2004CG02239

PATIENT
  Sex: Male

DRUGS (1)
  1. DIPRIVAN [Suspect]
     Indication: LIGHT ANAESTHESIA
     Dosage: 10 MG ONCE IA
     Route: 013
     Dates: start: 20041104, end: 20041104

REACTIONS (3)
  - BURNING SENSATION [None]
  - MEDICATION ERROR [None]
  - PAIN IN EXTREMITY [None]
